FAERS Safety Report 8171178-1 (Version None)
Quarter: 2012Q1

REPORT INFORMATION
  Report Type: 
  Country: None (occurrence: None)
  Receive Date: 20120228
  Receipt Date: 20111201
  Transmission Date: 20120608
  Serious: No
  Sender: FDA-Public Use
  Company Number: US-BRISTOL-MYERS SQUIBB COMPANY-16263360

PATIENT
  Age: 68 Year
  Sex: Female

DRUGS (2)
  1. INSULIN [Concomitant]
  2. ONGLYZA [Suspect]
     Dosage: DRUG INTERRUPTED AND RESTARTED
     Dates: start: 20110101

REACTIONS (1)
  - OEDEMA PERIPHERAL [None]
